FAERS Safety Report 9741874 (Version 2)
Quarter: 2013Q4

REPORT INFORMATION
  Report Type: Report from Study
  Country: IE (occurrence: IE)
  Receive Date: 20131210
  Receipt Date: 20131213
  Transmission Date: 20140711
  Serious: Yes (Hospitalization, Other)
  Sender: FDA-Public Use
  Company Number: PHHY2013IE143190

PATIENT
  Sex: Female

DRUGS (2)
  1. GILENYA [Suspect]
     Indication: RELAPSING-REMITTING MULTIPLE SCLEROSIS
     Dosage: 0.5 MG, QD
     Route: 048
     Dates: start: 20131205
  2. MIDODRINE [Concomitant]
     Indication: HYPOTENSION
     Dosage: 2.5 MG, UNK

REACTIONS (3)
  - Bradycardia [Unknown]
  - Dizziness [Unknown]
  - Hypotension [Recovering/Resolving]
